FAERS Safety Report 6144246-3 (Version None)
Quarter: 2009Q2

REPORT INFORMATION
  Report Type: 
  Country: None (occurrence: None)
  Receive Date: 20090406
  Receipt Date: 20090331
  Transmission Date: 20091009
  Serious: Yes (Other)
  Sender: FDA-Public Use
  Company Number: PHHY2009SI12152

PATIENT
  Age: 61 Year
  Sex: Female

DRUGS (3)
  1. ZOMETA [Suspect]
     Indication: METASTASES TO BONE
     Dosage: 4 MG EVERY 3 TO 4 WEEKS
     Route: 042
     Dates: start: 20070131, end: 20080201
  2. ZOMETA [Suspect]
     Indication: BREAST CANCER
  3. ARIMIDEX [Concomitant]

REACTIONS (2)
  - OSTEONECROSIS [None]
  - TOOTH DISORDER [None]
